FAERS Safety Report 8419286-1 (Version None)
Quarter: 2012Q2

REPORT INFORMATION
  Report Type: 
  Country: None (occurrence: None)
  Receive Date: 20120607
  Receipt Date: 20120605
  Transmission Date: 20120825
  Serious: Yes (Other)
  Sender: FDA-Public Use
  Company Number: JP-TEVA-337035ISR

PATIENT
  Age: 70 Year
  Sex: Female

DRUGS (3)
  1. PEMETREXED [Concomitant]
     Indication: LUNG NEOPLASM MALIGNANT
     Dosage: 500 MG/M2
     Route: 065
     Dates: start: 20100101
  2. CISPLATIN [Suspect]
     Indication: LUNG NEOPLASM MALIGNANT
     Dosage: 75 MG/M2
     Route: 065
     Dates: start: 20100101
  3. BEVACIZUMAB [Concomitant]
     Indication: LUNG NEOPLASM MALIGNANT
     Dosage: 15 MG/KG
     Route: 065
     Dates: start: 20100101

REACTIONS (1)
  - RENAL SALT-WASTING SYNDROME [None]
